FAERS Safety Report 7237409-7 (Version None)
Quarter: 2011Q1

REPORT INFORMATION
  Report Type: 
  Country: None (occurrence: None)
  Receive Date: 20110112
  Receipt Date: 20110103
  Transmission Date: 20110831
  Serious: Yes (Other)
  Sender: FDA-Public Use
  Company Number: JPI-P-013358

PATIENT
  Age: 57 Year
  Sex: Female
  Weight: 45.3597 kg

DRUGS (2)
  1. BLOOD PRESSURE MEDICATIONS [Concomitant]
  2. XYREM [Suspect]
     Indication: INSOMNIA
     Dosage: (2 IN 1 D),ORAL ;6 GM (3 GM,2 IN 1 D),ORAL
     Route: 048
     Dates: start: 20080101

REACTIONS (2)
  - TINNITUS [None]
  - UPPER LIMB FRACTURE [None]
